FAERS Safety Report 6822695-5 (Version None)
Quarter: 2010Q3

REPORT INFORMATION
  Report Type: 
  Country: None (occurrence: None)
  Receive Date: 20100708
  Receipt Date: 20100630
  Transmission Date: 20110219
  Serious: Yes (Death, Other)
  Sender: FDA-Public Use
  Company Number: JP-PFIZER INC-2010054400

PATIENT
  Age: 74 Year
  Sex: Male
  Weight: 64 kg

DRUGS (13)
  1. LIPITOR [Suspect]
     Indication: HYPERLIPIDAEMIA
     Dosage: 5 MG, DAILY
     Route: 048
     Dates: start: 20030603
  2. FAMOTIDINE [Suspect]
     Indication: PROPHYLAXIS AGAINST GASTROINTESTINAL ULCER
     Dosage: 20 MG, 1X/DAY
     Route: 048
     Dates: start: 20081112
  3. ASPIRIN [Concomitant]
     Indication: CORONARY ARTERY DISEASE
     Dosage: 100 MG, 1X/DAY
     Route: 048
     Dates: start: 20081112
  4. PRIMPERAN TAB [Concomitant]
     Dosage: UNK
     Route: 048
  5. CONSTAN [Concomitant]
     Dosage: UNK
     Route: 048
  6. METLIGINE [Concomitant]
     Dosage: UNK
     Dates: start: 20010101
  7. AMLODIN [Concomitant]
     Indication: ARTERIOSCLEROSIS CORONARY ARTERY
     Dosage: 5 MG, 1X/DAY
     Route: 048
     Dates: start: 20060502, end: 20060723
  8. AMLODIN [Concomitant]
     Dosage: 2.5 MG, 1X/DAY
     Route: 048
     Dates: start: 20060724
  9. TICLOPIDINE HCL [Concomitant]
     Dosage: UNK
  10. ATELEC [Concomitant]
     Dosage: UNK
  11. DILTIAZEM HYDROCHLORIDE [Concomitant]
     Dosage: UNK
  12. MEVALOTIN [Concomitant]
     Dosage: UNK
     Dates: start: 20010101
  13. URSODEOXYCHOLIC ACID [Concomitant]
     Indication: LIVER DISORDER
     Dosage: UNK

REACTIONS (5)
  - ARTERIAL STENOSIS [None]
  - CHEST DISCOMFORT [None]
  - INTERSTITIAL LUNG DISEASE [None]
  - NASOPHARYNGITIS [None]
  - TREMOR [None]
